FAERS Safety Report 4386748-6 (Version None)
Quarter: 2004Q2

REPORT INFORMATION
  Report Type: 
  Country: None (occurrence: None)
  Receive Date: 20040629
  Receipt Date: 20040623
  Transmission Date: 20050107
  Serious: Yes (Disabling)
  Sender: FDA-Public Use
  Company Number: US-MERCK-0406USA02176

PATIENT
  Age: 66 Year
  Sex: Male

DRUGS (2)
  1. VIOXX [Concomitant]
     Route: 048
  2. ZOCOR [Suspect]
     Indication: BLOOD CHOLESTEROL INCREASED
     Route: 048
     Dates: start: 20020101

REACTIONS (1)
  - DRY MOUTH [None]
